FAERS Safety Report 20351742 (Version 1)
Quarter: 2022Q1

REPORT INFORMATION
  Report Type: Spontaneous
  Country: FR (occurrence: FR)
  Receive Date: 20220119
  Receipt Date: 20220119
  Transmission Date: 20220423
  Serious: Yes (Death, Hospitalization, Other)
  Sender: FDA-Public Use
  Company Number: FR-BAYER-2022A005437

PATIENT
  Age: 84 Year
  Sex: Male

DRUGS (4)
  1. REGORAFENIB [Suspect]
     Active Substance: REGORAFENIB
     Indication: Hepatocellular carcinoma
     Dosage: UNK
     Dates: start: 202006
  2. NEXAVAR [Suspect]
     Active Substance: SORAFENIB
     Dosage: UNK
     Dates: start: 202001, end: 202006
  3. LIPIODOL [Concomitant]
     Active Substance: ETHIODIZED OIL
     Indication: Hepatocellular carcinoma
  4. LENVATINIB [Concomitant]
     Active Substance: LENVATINIB

REACTIONS (9)
  - Hepatocellular carcinoma [Fatal]
  - Thoracic haemorrhage [Fatal]
  - Hepatic failure [Fatal]
  - Metastases to lung [Fatal]
  - Acute respiratory failure [None]
  - Abdominal pain [None]
  - Metastases to bone [None]
  - Arthralgia [None]
  - Diaphragmatic disorder [None]

NARRATIVE: CASE EVENT DATE: 20200101
